FAERS Safety Report 18164011 (Version 1)
Quarter: 2020Q3

REPORT INFORMATION
  Report Type: Spontaneous
  Country: CR (occurrence: CR)
  Receive Date: 20200818
  Receipt Date: 20200818
  Transmission Date: 20201103
  Serious: Yes (Other)
  Sender: FDA-Public Use
  Company Number: CR-PFIZER INC-2020318755

PATIENT
  Age: 86 Year
  Sex: Female

DRUGS (1)
  1. LIPITOR [Suspect]
     Active Substance: ATORVASTATIN CALCIUM
     Dosage: 40 MG, DAILY
     Route: 048

REACTIONS (6)
  - Hypertension [Unknown]
  - Diabetes mellitus [Unknown]
  - Eye injury [Unknown]
  - Fall [Unknown]
  - Cerebrovascular accident [Unknown]
  - Visual impairment [Unknown]
